FAERS Safety Report 5243907-8 (Version None)
Quarter: 2007Q1

REPORT INFORMATION
  Report Type: 
  Country: None (occurrence: None)
  Receive Date: 20070222
  Receipt Date: 20070208
  Transmission Date: 20070707
  Serious: Yes (Other)
  Sender: FDA-Public Use
  Company Number: PHEH2007US01879

PATIENT
  Sex: Female

DRUGS (4)
  1. CLOZARIL [Suspect]
     Indication: PSYCHOTIC DISORDER
     Dosage: 500 MG, QD
     Route: 048
     Dates: start: 20000101
  2. CLOZARIL [Suspect]
     Dosage: 300 MG, QD
     Route: 048
  3. CLOZARIL [Suspect]
     Dosage: 400 MG, QD
     Route: 048
  4. CLOZARIL [Suspect]
     Dosage: 300 MG, QD
     Route: 048

REACTIONS (3)
  - ANTIPSYCHOTIC DRUG LEVEL INCREASED [None]
  - GAIT DISTURBANCE [None]
  - PSYCHOTIC DISORDER [None]
